FAERS Safety Report 7355652-3 (Version None)
Quarter: 2011Q1

REPORT INFORMATION
  Report Type: 
  Country: None (occurrence: None)
  Receive Date: 20110316
  Receipt Date: 20110217
  Transmission Date: 20110831
  Serious: No
  Sender: FDA-Public Use
  Company Number: US-B.I. PHARMACEUTICALS,INC./RIDGEFIELD-2011-BP-05788BP

PATIENT
  Age: 65 Year
  Sex: Male

DRUGS (4)
  1. METOPROLOL SUCCINATE [Concomitant]
     Indication: HYPERTENSION
  2. SPIRONOLACTONE [Concomitant]
     Indication: HYPERTENSION
  3. POTASSIUM [Concomitant]
     Indication: HYPERTENSION
  4. PRADAXA [Suspect]
     Indication: ATRIAL FIBRILLATION
     Dosage: 300 MG
     Route: 048
     Dates: start: 20101106

REACTIONS (5)
  - ERUCTATION [None]
  - FLATULENCE [None]
  - BREATH ALCOHOL TEST POSITIVE [None]
  - DECREASED APPETITE [None]
  - ABDOMINAL PAIN UPPER [None]
